FAERS Safety Report 4764885-1 (Version None)
Quarter: 2005Q3

REPORT INFORMATION
  Report Type: 
  Country: None (occurrence: None)
  Receive Date: 20050909
  Receipt Date: 20050831
  Transmission Date: 20060218
  Serious: Yes (Death)
  Sender: FDA-Public Use
  Company Number: JP-JNJFOC-20050900626

PATIENT
  Age: 72 Year
  Sex: Female

DRUGS (1)
  1. LEUSTATIN [Suspect]

REACTIONS (3)
  - ANURIA [None]
  - PANCYTOPENIA [None]
  - RENAL FAILURE [None]
